FAERS Safety Report 11337494 (Version 1)
Quarter: 2015Q3

REPORT INFORMATION
  Report Type: Spontaneous
  Country: US (occurrence: US)
  Receive Date: 20150803
  Receipt Date: 20150803
  Transmission Date: 20151125
  Serious: No
  Sender: FDA-Public Use
  Company Number: US-ELI_LILLY_AND_COMPANY-US200907002819

PATIENT
  Age: 7 Year
  Sex: Female

DRUGS (4)
  1. ZYPREXA [Suspect]
     Active Substance: OLANZAPINE
     Dosage: 2.5 MG, DAILY (1/D)
  2. ABILIFY [Concomitant]
     Active Substance: ARIPIPRAZOLE
  3. ZYPREXA [Suspect]
     Active Substance: OLANZAPINE
     Indication: REACTIVE ATTACHMENT DISORDER OF INFANCY OR EARLY CHILDHOOD
     Dosage: 5 MG, DAILY (1/D)
     Dates: start: 2008
  4. CLONIDINE. [Concomitant]
     Active Substance: CLONIDINE

REACTIONS (2)
  - Off label use [Unknown]
  - Rapid eye movements sleep abnormal [Unknown]
